FAERS Safety Report 7196508 (Version 2)
Quarter: 2015Q2

REPORT INFORMATION
  Report Type: Report from Study
  Country: GB (occurrence: GB)
  Receive Date: 20091202
  Receipt Date: 20150513
  Transmission Date: 20150821
  Serious: Yes (Hospitalization)
  Sender: FDA-Public Use
  Company Number: GB-ROCHE-671501

PATIENT
  Age: 67 Year
  Sex: Female
  Weight: 66 kg

DRUGS (4)
  1. CAPECITABINE. [Suspect]
     Active Substance: CAPECITABINE
     Indication: GASTRIC CANCER
     Dosage: LAST DOSE PRIOR TO SAE:30 JUNE 2009. DOSE REPORTED AS:45150.CYCLE:3
     Route: 048
  2. CISPLATIN. [Suspect]
     Active Substance: CISPLATIN
     Indication: GASTRIC CANCER
     Dosage: LAST DOSE PRIOR TO SAE:30 JUNE 2009
     Route: 042
     Dates: start: 20090519
  3. BEVACIZUMAB [Suspect]
     Active Substance: BEVACIZUMAB
     Indication: GASTRIC CANCER
     Dosage: LAST DOSE PRIOR TO SAE:30 JUNE 2009. DOSE REPORTED AS:502.CYCLE 3
     Route: 042
  4. EPIRUBICIN [Suspect]
     Active Substance: EPIRUBICIN
     Indication: GASTRIC CANCER
     Dosage: LAST DOSE PRIOR TO SAE:30 JUNE 2009
     Route: 042
     Dates: start: 20090519

REACTIONS (1)
  - Biliary tract disorder [Recovered/Resolved]

NARRATIVE: CASE EVENT DATE: 20090928
